FAERS Safety Report 5329111-3 (Version None)
Quarter: 2007Q2

REPORT INFORMATION
  Report Type: 
  Country: None (occurrence: None)
  Receive Date: 20070518
  Receipt Date: 20070517
  Transmission Date: 20071010
  Serious: Yes (Other)
  Sender: FDA-Public Use
  Company Number: US-BOEHRINGER INGELHEIM PHARMACEUTICALS, INC.-2007-BP-06717BP

PATIENT
  Sex: Female

DRUGS (12)
  1. SPIRIVA [Suspect]
  2. ADVAIR DISKUS 100/50 [Suspect]
     Indication: CHRONIC OBSTRUCTIVE PULMONARY DISEASE
     Route: 055
     Dates: start: 20070423, end: 20070425
  3. NITROGLYCERIN [Concomitant]
  4. MOMETASONE FUROATE [Concomitant]
  5. CETIRIZINE HYDROCHLORIDE [Concomitant]
  6. EZETIMIBE [Concomitant]
  7. ROSUVASTATIN CALCIUM [Concomitant]
  8. CARVEDILOL [Concomitant]
  9. OLMESARTAN MEDOXOMIL [Concomitant]
  10. PROMETHAZINE [Concomitant]
  11. TYLENOL W/ CODEINE [Concomitant]
  12. DIAZEPAM [Concomitant]

REACTIONS (8)
  - ANOREXIA [None]
  - CHEST PAIN [None]
  - DYSPNOEA [None]
  - HEADACHE [None]
  - HEART RATE INCREASED [None]
  - HEART RATE IRREGULAR [None]
  - HYPERTENSION [None]
  - SYNCOPE [None]
